FAERS Safety Report 6612428-X (Version None)
Quarter: 2010Q1

REPORT INFORMATION
  Report Type: 
  Country: None (occurrence: None)
  Receive Date: 20100303
  Receipt Date: 20100225
  Transmission Date: 20100710
  Serious: Yes (Other)
  Sender: FDA-Public Use
  Company Number: PHEH2010US02750

PATIENT
  Sex: Female

DRUGS (1)
  1. FEMARA [Suspect]
     Dosage: 2.5 MG, QD
     Route: 048
     Dates: start: 20090101

REACTIONS (5)
  - FALL [None]
  - HIP FRACTURE [None]
  - MUSCLE TIGHTNESS [None]
  - OSTEOPOROSIS [None]
  - TOOTH DISORDER [None]
